FAERS Safety Report 16799762 (Version 1)
Quarter: 2019Q3

REPORT INFORMATION
  Report Type: Spontaneous
  Country: JP (occurrence: JP)
  Receive Date: 20190912
  Receipt Date: 20190912
  Transmission Date: 20191005
  Serious: Yes (Other)
  Sender: FDA-Public Use
  Company Number: JP-PFIZER INC-2019385762

PATIENT
  Age: 71 Year
  Sex: Female

DRUGS (2)
  1. CELECOX [Suspect]
     Active Substance: CELECOXIB
     Dosage: 100 MG, UNK
     Dates: start: 20190801
  2. LYRICA [Suspect]
     Active Substance: PREGABALIN
     Dosage: 75 MG, UNK
     Dates: start: 20190801

REACTIONS (7)
  - Dysphonia [Unknown]
  - Rash erythematous [Unknown]
  - Mucosal disorder [Unknown]
  - Cough [Unknown]
  - Dyspnoea [Unknown]
  - Upper airway obstruction [Unknown]
  - Rash [Unknown]

NARRATIVE: CASE EVENT DATE: 2019
